FAERS Safety Report 9465742 (Version 1)
Quarter: 2013Q3

REPORT INFORMATION
  Report Type: Spontaneous
  Country: US (occurrence: US)
  Receive Date: 20130820
  Receipt Date: 20130820
  Transmission Date: 20140515
  Serious: No
  Sender: FDA-Public Use
  Company Number: US-ASTELLAS-2012US012372

PATIENT
  Sex: 0

DRUGS (2)
  1. AMBISOME [Suspect]
     Indication: RESPIRATORY MONILIASIS
     Dosage: 25MG/3ML MWF
     Route: 055
  2. AMBISOME [Suspect]
     Dosage: 15MG/3ML BID
     Route: 055

REACTIONS (1)
  - Incorrect route of drug administration [Unknown]
